FAERS Safety Report 17328009 (Version 1)
Quarter: 2020Q1

REPORT INFORMATION
  Report Type: Spontaneous
  Country: US (occurrence: US)
  Receive Date: 20200127
  Receipt Date: 20200127
  Transmission Date: 20200409
  Serious: No
  Sender: FDA-Public Use
  Company Number: US-PFIZER INC-2019487671

PATIENT
  Age: 28 Year
  Sex: Female

DRUGS (3)
  1. DOCETAXEL. [Suspect]
     Active Substance: DOCETAXEL
     Indication: BREAST CANCER FEMALE
     Dosage: 1 MG, CYCLIC (06 CYCLES, EVERY THREE WEEKS)
     Dates: start: 20150216, end: 20150608
  2. TAXOTERE [Concomitant]
     Active Substance: DOCETAXEL
     Indication: CHEMOTHERAPY
     Dosage: UNK
  3. HERCEPTIN [Concomitant]
     Active Substance: TRASTUZUMAB
     Indication: CHEMOTHERAPY
     Dosage: UNK

REACTIONS (6)
  - Anxiety [Unknown]
  - Alopecia [Not Recovered/Not Resolved]
  - Depression [Unknown]
  - Hair texture abnormal [Unknown]
  - Hair disorder [Unknown]
  - Hair colour changes [Unknown]

NARRATIVE: CASE EVENT DATE: 2015
